FAERS Safety Report 5312122-1 (Version None)
Quarter: 2007Q2

REPORT INFORMATION
  Report Type: 
  Country: None (occurrence: None)
  Receive Date: 20070430
  Receipt Date: 20060620
  Transmission Date: 20071010
  Serious: No
  Sender: FDA-Public Use
  Company Number: 2006UW13068

PATIENT
  Age: 78 Year
  Sex: Female
  Weight: 57.6 kg

DRUGS (5)
  1. NEXIUM [Suspect]
     Indication: GASTRITIS
     Route: 048
  2. INSULIN PUMP [Concomitant]
  3. SYNTHROID [Concomitant]
  4. CRESTOR [Concomitant]
     Route: 048
  5. COZAAR [Concomitant]

REACTIONS (4)
  - ASTHENIA [None]
  - BACK PAIN [None]
  - HUNGER [None]
  - SOMNOLENCE [None]
